FAERS Safety Report 10255310 (Version 1)
Quarter: 2014Q2

REPORT INFORMATION
  Report Type: Spontaneous
  Country: US (occurrence: US)
  Receive Date: 20140624
  Receipt Date: 20140624
  Transmission Date: 20141212
  Serious: No
  Sender: FDA-Public Use
  Company Number: US-PFIZER INC-2014170945

PATIENT
  Age: 70 Year
  Sex: Male

DRUGS (1)
  1. LYRICA [Suspect]
     Dosage: 150 MG, 2X/DAY

REACTIONS (12)
  - Drug withdrawal syndrome [Unknown]
  - Malaise [Unknown]
  - Sleep disorder [Unknown]
  - Hyperhidrosis [Unknown]
  - Anxiety [Unknown]
  - Nervousness [Unknown]
  - Chills [Unknown]
  - Tremor [Unknown]
  - Nausea [Unknown]
  - Diarrhoea [Unknown]
  - Gastrointestinal disorder [Unknown]
  - Decreased appetite [Unknown]
